FAERS Safety Report 6988991-6 (Version None)
Quarter: 2010Q3

REPORT INFORMATION
  Report Type: 
  Country: None (occurrence: None)
  Receive Date: 20100916
  Receipt Date: 20100909
  Transmission Date: 20110219
  Serious: Yes (Hospitalization)
  Sender: FDA-Public Use
  Company Number: FR-AMGEN-QUU436947

PATIENT
  Sex: Female

DRUGS (13)
  1. NEULASTA [Suspect]
     Indication: CHEMOTHERAPY
     Route: 058
     Dates: start: 20100811, end: 20100811
  2. FENOFIBRATE [Concomitant]
  3. LEXOMIL [Concomitant]
  4. ACETAMINOPHEN [Concomitant]
  5. BLEOMYCIN SULFATE [Concomitant]
     Dates: start: 20100806
  6. ETOPOSIDE [Concomitant]
     Dates: start: 20100806
  7. CISPLATIN [Concomitant]
     Dates: start: 20100806
  8. POLARAMINE [Concomitant]
     Dates: start: 20100806
  9. EMEND [Concomitant]
     Dates: start: 20100806
  10. ZOFRAN [Concomitant]
     Dates: start: 20100806
  11. SOLU-MEDROL [Concomitant]
     Dates: start: 20100806
  12. VOGALENE [Concomitant]
     Dates: start: 20100806
  13. XANAX [Concomitant]
     Dates: start: 20100806

REACTIONS (1)
  - DRUG INEFFECTIVE [None]
